FAERS Safety Report 17591040 (Version 4)
Quarter: 2020Q3

REPORT INFORMATION
  Report Type: Spontaneous
  Country: US (occurrence: US)
  Receive Date: 20200327
  Receipt Date: 20200706
  Transmission Date: 20201102
  Serious: Yes (Other)
  Sender: FDA-Public Use
  Company Number: US-009507513-2003USA007221

PATIENT
  Age: 25 Year
  Sex: Female
  Weight: 115.19 kg

DRUGS (2)
  1. NEXPLANON [Suspect]
     Active Substance: ETONOGESTREL
     Indication: INFERTILITY
     Dosage: 1 ROD/ EVERY 3 YEARS; IN RIGHT UPPER ARM
     Route: 059
     Dates: start: 20141029
  2. PRINIVIL [Concomitant]
     Active Substance: LISINOPRIL
     Indication: HYPERTENSION
     Dosage: 10 MG
     Route: 048
     Dates: start: 20200220

REACTIONS (3)
  - Complication associated with device [Not Recovered/Not Resolved]
  - Device dislocation [Not Recovered/Not Resolved]
  - Product dose omission issue [Unknown]

NARRATIVE: CASE EVENT DATE: 20200630
